FAERS Safety Report 25564731 (Version 1)
Quarter: 2025Q3

REPORT INFORMATION
  Report Type: Spontaneous
  Country: EU (occurrence: EU)
  Receive Date: 20250716
  Receipt Date: 20250716
  Transmission Date: 20251020
  Serious: Yes (Other)
  Sender: AMGEN
  Company Number: EU-AMGEN-ROUSP2025135495

PATIENT

DRUGS (8)
  1. BLINATUMOMAB [Suspect]
     Active Substance: BLINATUMOMAB
     Indication: Philadelphia chromosome positive
     Route: 065
  2. BLINATUMOMAB [Suspect]
     Active Substance: BLINATUMOMAB
     Indication: Acute lymphocytic leukaemia
  3. IMATINIB [Concomitant]
     Active Substance: IMATINIB
  4. CYCLOPHOSPHAMIDE [Concomitant]
     Active Substance: CYCLOPHOSPHAMIDE
  5. METHOTREXATE [Concomitant]
     Active Substance: METHOTREXATE
     Route: 029
  6. VINCRISTINE [Concomitant]
     Active Substance: VINCRISTINE
  7. DOXORUBICIN [Concomitant]
     Active Substance: DOXORUBICIN
  8. PEGASPARGASE [Concomitant]
     Active Substance: PEGASPARGASE

REACTIONS (2)
  - Cytopenia [Unknown]
  - Pyrexia [Unknown]
